FAERS Safety Report 9234239 (Version 1)
Quarter: 2013Q2

REPORT INFORMATION
  Report Type: Report from Study
  Country: AU (occurrence: AU)
  Receive Date: 20130416
  Receipt Date: 20130416
  Transmission Date: 20140414
  Serious: Yes (Hospitalization)
  Sender: FDA-Public Use
  Company Number: AU-ROCHE-1214859

PATIENT
  Age: 66 Year
  Sex: Female

DRUGS (18)
  1. ACTEMRA [Suspect]
     Indication: RHEUMATOID ARTHRITIS
     Route: 042
     Dates: start: 20120118
  2. ASPIRIN [Concomitant]
     Route: 065
  3. CRESTOR [Concomitant]
     Indication: BLOOD CHOLESTEROL
     Route: 065
  4. OMEPRAZOLE [Concomitant]
     Route: 065
  5. COVERSYL PLUS (AUSTRALIA) [Concomitant]
     Indication: BLOOD PRESSURE
     Route: 065
  6. ALDACTONE (AUSTRALIA) [Concomitant]
     Route: 065
  7. FRUSEMIDE [Concomitant]
     Route: 065
  8. METFORMIN [Concomitant]
     Route: 065
  9. GLICLAZIDE [Concomitant]
     Route: 065
  10. CLOPIDOGREL [Concomitant]
     Route: 065
  11. PARACETAMOL [Concomitant]
     Indication: ANALGESIC THERAPY
     Route: 065
  12. METHOTREXATE [Concomitant]
     Route: 065
     Dates: start: 20130123
  13. FOLIC ACID [Concomitant]
     Route: 065
  14. PREDNISOLONE [Concomitant]
     Route: 065
  15. CALCIUM CARBONATE [Concomitant]
     Route: 065
  16. CHOLECALCIFEROL [Concomitant]
     Route: 065
  17. K+ TABS [Concomitant]
  18. FISH OIL [Concomitant]
     Route: 065

REACTIONS (1)
  - Hypotension [Recovered/Resolved]
